FAERS Safety Report 10741020 (Version 2)
Quarter: 2015Q1

REPORT INFORMATION
  Report Type: Spontaneous
  Country: US (occurrence: US)
  Receive Date: 20150127
  Receipt Date: 20150323
  Transmission Date: 20150721
  Serious: Yes (Other)
  Sender: FDA-Public Use
  Company Number: US-BAYER-2015-011545

PATIENT
  Age: 20 Year
  Sex: Female
  Weight: 78.91 kg

DRUGS (1)
  1. MIRENA [Suspect]
     Active Substance: LEVONORGESTREL
     Indication: CONTRACEPTION
     Dosage: 20 MCG/24HR, CONT
     Route: 015
     Dates: start: 20141215, end: 20150121

REACTIONS (4)
  - Abdominal pain [None]
  - Embedded device [None]
  - Pain [None]
  - Abdominal pain lower [None]

NARRATIVE: CASE EVENT DATE: 20150116
